FAERS Safety Report 7393382-2 (Version None)
Quarter: 2011Q2

REPORT INFORMATION
  Report Type: 
  Country: None (occurrence: None)
  Receive Date: 20110405
  Receipt Date: 20110325
  Transmission Date: 20111010
  Serious: Yes (Other)
  Sender: FDA-Public Use
  Company Number: US-SHIRE-SPV1-2011-00491

PATIENT
  Age: 14 Year
  Sex: Male
  Weight: 97.506 kg

DRUGS (1)
  1. VYVANSE [Suspect]
     Indication: ATTENTION DEFICIT/HYPERACTIVITY DISORDER
     Dosage: 40 MG, 1X/DAY:QD
     Route: 048
     Dates: start: 20110204, end: 20110322

REACTIONS (6)
  - PULSE ABNORMAL [None]
  - PALPITATIONS [None]
  - THROAT TIGHTNESS [None]
  - CONDITION AGGRAVATED [None]
  - HEART RATE INCREASED [None]
  - ARRHYTHMIA [None]
